FAERS Safety Report 21717286 (Version 1)
Quarter: 2022Q4

REPORT INFORMATION
  Report Type: Spontaneous
  Country: FR (occurrence: FR)
  Receive Date: 20221212
  Receipt Date: 20221212
  Transmission Date: 20230113
  Serious: Yes (Death, Other)
  Sender: FDA-Public Use
  Company Number: FR-BAXTER-2022BAX026236

PATIENT
  Age: 88 Year
  Sex: Female

DRUGS (3)
  1. DEXAMETHASONE [Suspect]
     Active Substance: DEXAMETHASONE
     Indication: Product used for unknown indication
     Dosage: 10 MG/DOSE 1 DOSE(S)/WEEK, TREATMENT LINE NUMBER 4, DURATION: 5.4 MONTHS
     Route: 065
  2. CYCLOPHOSPHAMIDE [Suspect]
     Active Substance: CYCLOPHOSPHAMIDE
     Indication: Product used for unknown indication
     Dosage: 50 MG/DOSE 1 DOSE(S)/WEEK 2 WEEK(S)/CYCLE, TREATMENT LINE NUMBER 4, DURATION: 5.4 MONTHS
     Route: 065
  3. BORTEZOMIB [Suspect]
     Active Substance: BORTEZOMIB
     Indication: Product used for unknown indication
     Dosage: 1.3 MG/M2/DOSE, 2 DOSE(S)/WEEK 2 WEEK(S)/CYCLE, TREATMENT LINE NUMBER 4, DURATION: 5.4 MONTHS
     Route: 065

REACTIONS (2)
  - Death [Fatal]
  - Disease progression [Unknown]

NARRATIVE: CASE EVENT DATE: 20200528
